FAERS Safety Report 24048936 (Version 1)
Quarter: 2024Q3

REPORT INFORMATION
  Report Type: Spontaneous
  Country: US (occurrence: US)
  Receive Date: 20240704
  Receipt Date: 20240704
  Transmission Date: 20241016
  Serious: No
  Sender: SUNOVION
  Company Number: US-SMPA-2024SPA000080

PATIENT

DRUGS (2)
  1. APTIOM [Suspect]
     Active Substance: ESLICARBAZEPINE ACETATE
     Dosage: 1600 MG ( 2-800MG TABS), HS
     Route: 048
     Dates: start: 20240624
  2. APTIOM [Suspect]
     Active Substance: ESLICARBAZEPINE ACETATE
     Dosage: 1600 MG, QD (2X 800 MG DAILY IN THE MORNING)
     Route: 048
     Dates: start: 20240625

REACTIONS (2)
  - Vision blurred [Not Recovered/Not Resolved]
  - Accidental overdose [Unknown]
